FAERS Safety Report 16718184 (Version 2)
Quarter: 2019Q3

REPORT INFORMATION
  Report Type: Report from Study
  Country: None (occurrence: BE)
  Receive Date: 20190820
  Receipt Date: 20190924
  Transmission Date: 20191005
  Serious: Yes (Other)
  Sender: FDA-Public Use
  Company Number: BE-ABBVIE-19K-013-2889441-00

PATIENT
  Sex: Female

DRUGS (1)
  1. HUMIRA [Suspect]
     Active Substance: ADALIMUMAB
     Indication: HIDRADENITIS
     Route: 058

REACTIONS (10)
  - Visual impairment [Unknown]
  - Infective tenosynovitis [Unknown]
  - Hidradenitis [Unknown]
  - Ectopic pregnancy [Unknown]
  - Eye inflammation [Unknown]
  - Fatigue [Not Recovered/Not Resolved]
  - Swelling face [Unknown]
  - Phlebitis [Unknown]
  - Exposure during pregnancy [Unknown]
  - Adverse event [Unknown]

NARRATIVE: CASE EVENT DATE: 201909
